FAERS Safety Report 10363181 (Version 2)
Quarter: 2014Q3

REPORT INFORMATION
  Report Type: Report from Study
  Country: LB (occurrence: LB)
  Receive Date: 20140805
  Receipt Date: 20140805
  Transmission Date: 20150326
  Serious: Yes (Other)
  Sender: FDA-Public Use
  Company Number: PHHY2013LB090634

PATIENT
  Age: 56 Year
  Sex: Female

DRUGS (5)
  1. EURO-D [Concomitant]
     Dosage: 10000 U, WEEKLY
     Route: 048
  2. CI-CAL D [Concomitant]
     Dosage: 1 DF, QD
     Route: 048
  3. RABEC [Concomitant]
     Dosage: 20 MG, QD
     Route: 048
  4. ACLASTA [Suspect]
     Active Substance: ZOLEDRONIC ACID
     Indication: OSTEOPOROSIS
     Dosage: 5 MG
     Route: 042
     Dates: start: 20130729
  5. ACTOS [Concomitant]
     Active Substance: PIOGLITAZONE HYDROCHLORIDE
     Dosage: 1 DF, QD
     Route: 048

REACTIONS (4)
  - Fall [Unknown]
  - Wrist fracture [Unknown]
  - Pyrexia [Recovered/Resolved]
  - Pain [Recovered/Resolved]

NARRATIVE: CASE EVENT DATE: 20130729
